FAERS Safety Report 6634916-2 (Version None)
Quarter: 2010Q1

REPORT INFORMATION
  Report Type: 
  Country: None (occurrence: None)
  Receive Date: 20100312
  Receipt Date: 20100312
  Transmission Date: 20100710
  Serious: No
  Sender: FDA-Public Use
  Company Number: None

PATIENT
  Sex: Female
  Weight: 54.5677 kg

DRUGS (1)
  1. RITUXAN [Suspect]
     Indication: CHRONIC LYMPHOCYTIC LEUKAEMIA
     Dosage: IV - 577 MG
     Dates: start: 20100225

REACTIONS (5)
  - BLOOD PRESSURE DECREASED [None]
  - CHILLS [None]
  - CONFUSIONAL STATE [None]
  - NAUSEA [None]
  - OXYGEN SATURATION DECREASED [None]
